FAERS Safety Report 5718447-X (Version None)
Quarter: 2008Q2

REPORT INFORMATION
  Report Type: 
  Country: None (occurrence: None)
  Receive Date: 20080425
  Receipt Date: 20080415
  Transmission Date: 20081010
  Serious: Yes (Life-Threatening, Hospitalization)
  Sender: FDA-Public Use
  Company Number: CN-JNJFOC-20080404618

PATIENT
  Sex: Male

DRUGS (2)
  1. RISPERDAL CONSTA [Suspect]
     Indication: SCHIZOPHRENIA
     Route: 030
  2. PALIPERIDONE [Suspect]
     Indication: SCHIZOPHRENIA

REACTIONS (5)
  - CONVULSION [None]
  - FALL [None]
  - HAEMATOMA [None]
  - ILL-DEFINED DISORDER [None]
  - RESPIRATORY RATE INCREASED [None]
